FAERS Safety Report 5940747-9 (Version None)
Quarter: 2008Q4

REPORT INFORMATION
  Report Type: 
  Country: None (occurrence: None)
  Receive Date: 20081103
  Receipt Date: 20081103
  Transmission Date: 20090506
  Serious: Yes (Hospitalization)
  Sender: FDA-Public Use
  Company Number: None

PATIENT
  Age: 80 Year
  Sex: Male

DRUGS (1)
  1. DIGOXIN [Suspect]
     Dosage: 0.125 MG EVERY DAY PO
     Route: 048
     Dates: start: 20070201, end: 20080303

REACTIONS (8)
  - DIZZINESS [None]
  - FATIGUE [None]
  - HYPERKALAEMIA [None]
  - MALAISE [None]
  - THERAPEUTIC AGENT TOXICITY [None]
  - VERTIGO [None]
  - VISION BLURRED [None]
  - VISUAL BRIGHTNESS [None]
